FAERS Safety Report 5395745-3 (Version None)
Quarter: 2007Q3

REPORT INFORMATION
  Report Type: 
  Country: None (occurrence: None)
  Receive Date: 20070724
  Receipt Date: 20070712
  Transmission Date: 20080115
  Serious: Yes (Other)
  Sender: FDA-Public Use
  Company Number: US-PFIZER INC-2007058431

PATIENT
  Sex: Female

DRUGS (8)
  1. NEURONTIN [Suspect]
     Indication: PAIN IN EXTREMITY
  2. BETAPACE [Concomitant]
  3. DIGOXIN [Concomitant]
  4. LASIX [Concomitant]
  5. ALTACE [Concomitant]
  6. ALDACTONE [Concomitant]
  7. SYNTHROID [Concomitant]
  8. VITAMINE C [Concomitant]

REACTIONS (2)
  - CARDIAC OPERATION [None]
  - MUSCULAR WEAKNESS [None]
